FAERS Safety Report 12447781 (Version 3)
Quarter: 2018Q2

REPORT INFORMATION
  Report Type: Spontaneous
  Country: US (occurrence: US)
  Receive Date: 20160608
  Receipt Date: 20180515
  Transmission Date: 20180711
  Serious: No
  Sender: FDA-Public Use
  Company Number: US-SA-2016SA095034

PATIENT
  Age: 70 Year
  Sex: Female

DRUGS (7)
  1. GLIPIZIDE. [Suspect]
     Active Substance: GLIPIZIDE
     Route: 065
     Dates: end: 2016
  2. SOLOSTAR [Suspect]
     Active Substance: DEVICE
     Indication: TYPE 2 DIABETES MELLITUS
     Route: 065
  3. INSULIN [Concomitant]
     Active Substance: INSULIN NOS
     Dosage: WITH MEALS
  4. TOUJEO [Suspect]
     Active Substance: INSULIN GLARGINE
     Indication: TYPE 2 DIABETES MELLITUS
     Dosage: DOSE:44 UNIT(S)
     Route: 051
     Dates: start: 2015
  5. TOUJEO [Suspect]
     Active Substance: INSULIN GLARGINE
     Indication: TYPE 2 DIABETES MELLITUS
     Dosage: DOSE:50 UNIT(S)
     Route: 051
  6. SOLOSTAR [Suspect]
     Active Substance: DEVICE
     Indication: TYPE 2 DIABETES MELLITUS
     Route: 065
     Dates: start: 2015
  7. TOUJEO [Suspect]
     Active Substance: INSULIN GLARGINE
     Indication: TYPE 2 DIABETES MELLITUS
     Dosage: DOSE:44 UNIT(S)
     Route: 051
     Dates: start: 2015

REACTIONS (5)
  - Blood glucose decreased [Recovered/Resolved]
  - Product use issue [Unknown]
  - Product storage error [Unknown]
  - Visual impairment [Unknown]
  - Blood glucose increased [Unknown]
